FAERS Safety Report 9651857 (Version 1)
Quarter: 2013Q4

REPORT INFORMATION
  Report Type: Spontaneous
  Country: US (occurrence: US)
  Receive Date: 20131029
  Receipt Date: 20131029
  Transmission Date: 20140711
  Serious: No
  Sender: FDA-Public Use
  Company Number: US-ENDO PHARMACEUTICALS INC.-ALBU20120002

PATIENT
  Age: 5 Year
  Sex: Female
  Weight: 19.07 kg

DRUGS (1)
  1. ALBUTEROL SULFATE SYRUP [Suspect]
     Indication: PRODUCT USED FOR UNKNOWN INDICATION
     Dosage: 2 MG (1 TEASPOON)
     Route: 048
     Dates: start: 201202, end: 201202

REACTIONS (2)
  - Lip swelling [Recovered/Resolved]
  - Urticaria [Recovered/Resolved]
